FAERS Safety Report 9375362 (Version 2)
Quarter: 2013Q4

REPORT INFORMATION
  Report Type: Spontaneous
  Country: GB (occurrence: GB)
  Receive Date: 20130628
  Receipt Date: 20131021
  Transmission Date: 20140711
  Serious: Yes (Death, Hospitalization, Other)
  Sender: FDA-Public Use
  Company Number: GB-009507513-1306GBR014020

PATIENT
  Age: 71 Year
  Sex: Female

DRUGS (7)
  1. SITAGLIPTIN PHOSPHATE [Suspect]
     Dosage: 100 MG, QD
     Route: 048
     Dates: start: 201304, end: 20130531
  2. GABAPENTIN [Concomitant]
     Dosage: 300 MG, TID
  3. METOCLOPRAMIDE [Concomitant]
     Dosage: 10 MG, BID
  4. MST CONTINUS [Concomitant]
     Dosage: 90 MG, BID
  5. OMEPRAZOLE [Concomitant]
     Dosage: 20 MG, QD
  6. ORAMORPH [Concomitant]
     Dosage: 20 MG, PRN
  7. ACETAMINOPHEN [Concomitant]
     Dosage: 1 G, Q6H

REACTIONS (4)
  - Pancreatic carcinoma [Fatal]
  - Disease progression [Unknown]
  - Hypophagia [Unknown]
  - Pancreatic cyst [Unknown]
